FAERS Safety Report 23158953 (Version 2)
Quarter: 2023Q4

REPORT INFORMATION
  Report Type: Report from Study
  Country: US (occurrence: US)
  Receive Date: 20231108
  Receipt Date: 20231114
  Transmission Date: 20240110
  Serious: Yes (Hospitalization)
  Sender: FDA-Public Use
  Company Number: US-002147023-NVSC2023US237038

PATIENT
  Age: 77 Year
  Sex: Male

DRUGS (2)
  1. TAFINLAR [Suspect]
     Active Substance: DABRAFENIB MESYLATE
     Indication: Non-small cell lung cancer metastatic
     Dosage: UNK, BID
     Route: 048
     Dates: start: 20231018
  2. MEKINIST [Suspect]
     Active Substance: TRAMETINIB DIMETHYL SULFOXIDE
     Indication: Non-small cell lung cancer metastatic
     Dosage: UNK, QD
     Route: 048
     Dates: start: 20231018

REACTIONS (3)
  - Pneumonia [Unknown]
  - Pyrexia [Unknown]
  - Hyponatraemia [Unknown]

NARRATIVE: CASE EVENT DATE: 20231029
